FAERS Safety Report 9643117 (Version 1)
Quarter: 2013Q4

REPORT INFORMATION
  Report Type: Spontaneous
  Country: GB (occurrence: GB)
  Receive Date: 20131024
  Receipt Date: 20131024
  Transmission Date: 20140711
  Serious: Yes (Other)
  Sender: FDA-Public Use
  Company Number: GB-ASTRAZENECA-2013SE76379

PATIENT
  Age: 84 Year
  Sex: Male
  Weight: 52.3 kg

DRUGS (11)
  1. TICAGRELOR [Suspect]
     Indication: ACUTE MYOCARDIAL INFARCTION
     Dosage: 180 MG LOADING DOSE
     Route: 048
  2. TICAGRELOR [Suspect]
     Indication: ACUTE MYOCARDIAL INFARCTION
     Route: 048
     Dates: start: 20130925, end: 20130929
  3. ASPIRIN [Concomitant]
     Indication: ACUTE MYOCARDIAL INFARCTION
  4. DALTEPARIN [Concomitant]
     Indication: ACUTE MYOCARDIAL INFARCTION
  5. FOLIC ACID [Concomitant]
  6. GLYCERYL TRINITRATE [Concomitant]
  7. ISOSORBIDE MONONITRATE [Concomitant]
  8. OMEPRAZOLE [Concomitant]
  9. PARACETAMOL [Concomitant]
  10. SIMVASTATIN [Concomitant]
  11. TRIMETHOPRIM [Concomitant]

REACTIONS (2)
  - Haemoglobin decreased [Unknown]
  - Rectal haemorrhage [Recovering/Resolving]
